FAERS Safety Report 23794070 (Version 1)
Quarter: 2024Q2

REPORT INFORMATION
  Report Type: Spontaneous
  Country: CN (occurrence: CN)
  Receive Date: 20240429
  Receipt Date: 20240429
  Transmission Date: 20240716
  Serious: Yes (Other)
  Sender: FDA-Public Use
  Company Number: CN-PFIZER INC-PV202400054760

PATIENT
  Age: 42 Year
  Sex: Male

DRUGS (2)
  1. CYTARABINE [Suspect]
     Active Substance: CYTARABINE
     Indication: Myeloid leukaemia
     Dosage: 90 MG, 2X/DAY
     Route: 041
     Dates: start: 20240401, end: 20240403
  2. IDARUBICIN [Concomitant]
     Active Substance: IDARUBICIN
     Dosage: 10 MG (D1-3)
     Dates: start: 20240401

REACTIONS (2)
  - Rash [Recovering/Resolving]
  - Swelling face [Recovering/Resolving]

NARRATIVE: CASE EVENT DATE: 20240403
